FAERS Safety Report 15537458 (Version 3)
Quarter: 2019Q1

REPORT INFORMATION
  Report Type: Spontaneous
  Country: DE (occurrence: DE)
  Receive Date: 20181022
  Receipt Date: 20190123
  Transmission Date: 20190417
  Serious: Yes (Other)
  Sender: FDA-Public Use
  Company Number: DE-PFIZER INC-2018420729

PATIENT
  Age: 79 Year
  Sex: Female

DRUGS (4)
  1. MOXONIDIN [Concomitant]
     Active Substance: MOXONIDINE
     Dosage: 0.2 MG, 1X/DAY
  2. LANTAREL [Suspect]
     Active Substance: METHOTREXATE SODIUM
     Dosage: UNK
     Dates: start: 2014
  3. CANDESARTAN. [Concomitant]
     Active Substance: CANDESARTAN
     Dosage: UNK (1X 16/12 + 1X 8MG)
  4. MESTINON [Concomitant]
     Active Substance: PYRIDOSTIGMINE BROMIDE
     Dosage: 30 MG, 3X/DAY

REACTIONS (6)
  - Hair texture abnormal [Recovered/Resolved]
  - Chills [Recovered/Resolved]
  - Pruritus generalised [Recovered/Resolved]
  - Body temperature increased [Recovered/Resolved]
  - Nasopharyngitis [Unknown]
  - Dermatitis bullous [Recovered/Resolved]
